FAERS Safety Report 7108820-X (Version None)
Quarter: 2010Q4

REPORT INFORMATION
  Report Type: 
  Country: None (occurrence: None)
  Receive Date: 20101115
  Receipt Date: 20101115
  Transmission Date: 20110411
  Serious: Yes (Hospitalization)
  Sender: FDA-Public Use
  Company Number: None

PATIENT
  Sex: Female
  Weight: 70.3075 kg

DRUGS (1)
  1. LYRICA [Suspect]
     Indication: PAIN
     Dosage: ONCE BID ORAL
     Route: 048
     Dates: start: 20101008, end: 20101009

REACTIONS (2)
  - MUSCLE SPASMS [None]
  - SPEECH DISORDER [None]
